FAERS Safety Report 5654130-7 (Version None)
Quarter: 2008Q1

REPORT INFORMATION
  Report Type: 
  Country: None (occurrence: None)
  Receive Date: 20080306
  Receipt Date: 20080303
  Transmission Date: 20080703
  Serious: Yes (Other)
  Sender: FDA-Public Use
  Company Number: AU-BOEHRINGER INGELHEIM GMBH, GERMANY-2008-BP-03119RO

PATIENT
  Age: 70 Year
  Sex: Male

DRUGS (5)
  1. CYCLOPHOSPHAMIDE [Suspect]
     Indication: CHRONIC LYMPHOCYTIC LEUKAEMIA
  2. FLUDARABINE [Suspect]
     Indication: CHRONIC LYMPHOCYTIC LEUKAEMIA
  3. RITUXIMAB [Suspect]
     Indication: CHRONIC LYMPHOCYTIC LEUKAEMIA
  4. MINOCYCLINE HCL [Concomitant]
     Indication: TRICHOSTASIS SPINULOSA
  5. TOPICAL KERATOLYTIC CREAM - UREA 10% + LACTIC ACID 5% [Concomitant]
     Indication: TRICHOSTASIS SPINULOSA
     Route: 061

REACTIONS (2)
  - ALOPECIA [None]
  - TRICHOSTASIS SPINULOSA [None]
